FAERS Safety Report 6412639-2 (Version None)
Quarter: 2009Q4

REPORT INFORMATION
  Report Type: 
  Country: None (occurrence: None)
  Receive Date: 20091023
  Receipt Date: 20091015
  Transmission Date: 20100525
  Serious: Yes (Hospitalization)
  Sender: FDA-Public Use
  Company Number: PHHY2009IT44926

PATIENT
  Sex: Male
  Weight: 70 kg

DRUGS (2)
  1. CERTICAN [Suspect]
     Dosage: 0.75 MG PER DAY
     Route: 048
     Dates: start: 20080527, end: 20090808
  2. NEORAL [Suspect]
     Dosage: 120 MG PER DAY
     Route: 048
     Dates: start: 20080527, end: 20090808

REACTIONS (1)
  - TRANSPLANT REJECTION [None]
